FAERS Safety Report 11265056 (Version 8)
Quarter: 2017Q3

REPORT INFORMATION
  Report Type: Report from Study
  Country: CA (occurrence: CA)
  Receive Date: 20150713
  Receipt Date: 20170925
  Transmission Date: 20171127
  Serious: Yes (Hospitalization, Other)
  Sender: FDA-Public Use
  Company Number: PHHY2013CA140566

PATIENT
  Age: 70 Year
  Sex: Female

DRUGS (5)
  1. ASPIRIN. [Concomitant]
     Active Substance: ASPIRIN
     Indication: PRODUCT USED FOR UNKNOWN INDICATION
     Dosage: 300 MG, UNK
     Route: 065
  2. SANDOSTATIN LAR DEPOT [Suspect]
     Active Substance: OCTREOTIDE ACETATE
     Indication: CARCINOID TUMOUR
     Dosage: 60 MG, QMO EVERY FOUR WEEK
     Route: 030
     Dates: start: 20071116
  3. SANDOSTATIN LAR DEPOT [Suspect]
     Active Substance: OCTREOTIDE ACETATE
     Dosage: 60 MG, EVERY 3 WEEKS
     Route: 030
  4. VITAMINE C [Concomitant]
     Active Substance: ASCORBIC ACID
     Indication: PRODUCT USED FOR UNKNOWN INDICATION
     Dosage: 500 MG, UNK
     Route: 065
  5. SANDOSTATIN LAR DEPOT [Suspect]
     Active Substance: OCTREOTIDE ACETATE
     Dosage: 60 MG, EVERY 2 WEEKS
     Route: 030
     Dates: start: 20150618

REACTIONS (27)
  - Blood pressure decreased [Unknown]
  - Pain in extremity [Unknown]
  - Headache [Unknown]
  - Blood pressure increased [Recovering/Resolving]
  - Gout [Recovering/Resolving]
  - Inflammation [Recovering/Resolving]
  - Eye contusion [Unknown]
  - Vomiting [Unknown]
  - Oesophageal achalasia [Unknown]
  - Palpitations [Unknown]
  - Oral infection [Unknown]
  - Injection site pain [Unknown]
  - Burning sensation [Unknown]
  - Stress [Unknown]
  - Inappropriate schedule of drug administration [Unknown]
  - Complication associated with device [Unknown]
  - Fall [Unknown]
  - Head injury [Unknown]
  - Swelling [Unknown]
  - Arrhythmia [Unknown]
  - Hepatic neoplasm [Unknown]
  - Blood pressure systolic increased [Unknown]
  - Flushing [Unknown]
  - Malignant neoplasm progression [Unknown]
  - Malaise [Unknown]
  - Heart rate decreased [Unknown]
  - Body temperature decreased [Unknown]

NARRATIVE: CASE EVENT DATE: 201406
